FAERS Safety Report 15134783 (Version 3)
Quarter: 2018Q4

REPORT INFORMATION
  Report Type: Spontaneous
  Country: FR (occurrence: FR)
  Receive Date: 20180712
  Receipt Date: 20181018
  Transmission Date: 20190204
  Serious: Yes (Death, Congenital Anomaly)
  Sender: FDA-Public Use
  Company Number: FR-PFIZER INC-2018279581

PATIENT
  Age: 62 Year
  Sex: Female
  Weight: 52 kg

DRUGS (7)
  1. EMEND [Suspect]
     Active Substance: APREPITANT
     Indication: ANTIEMETIC SUPPORTIVE CARE
     Dosage: 125 MILLIGRAM DAILY; GELULE
     Route: 048
     Dates: start: 20180517, end: 20180517
  2. AVASTIN [Suspect]
     Active Substance: BEVACIZUMAB
     Indication: LUNG ADENOCARCINOMA
     Dosage: 390 MILLIGRAM DAILY;
     Route: 042
     Dates: start: 20180517, end: 20180517
  3. METHYLPREDNISOLONE MYLAN [METHYLPREDNISOLONE HEMISUCCINATE] [Suspect]
     Active Substance: METHYLPREDNISOLONE HEMISUCCINATE
     Indication: ANTIEMETIC SUPPORTIVE CARE
     Dosage: 52 MILLIGRAM DAILY
     Dates: start: 20180517, end: 20180517
  4. ONDANSETRON HCL [Suspect]
     Active Substance: ONDANSETRON HYDROCHLORIDE
     Indication: ANTIEMETIC SUPPORTIVE CARE
     Dosage: 8 MILLIGRAM DAILY;
     Route: 042
     Dates: start: 20180517, end: 20180517
  5. ALIMTA [Suspect]
     Active Substance: PEMETREXED DISODIUM
     Dosage: 765 MILLIGRAM DAILY;
     Route: 042
     Dates: start: 20180517, end: 20180517
  6. CISPLATIN. [Suspect]
     Active Substance: CISPLATIN
     Indication: LUNG ADENOCARCINOMA
     Dosage: 115 MILLIGRAM DAILY;
     Route: 042
     Dates: start: 20180517, end: 20180517
  7. ALIMTA [Suspect]
     Active Substance: PEMETREXED DISODIUM
     Indication: LUNG ADENOCARCINOMA
     Dosage: 765 MILLIGRAM DAILY;
     Route: 042
     Dates: start: 20180517, end: 20180517

REACTIONS (4)
  - Aplasia [Fatal]
  - Hyperkalaemia [Fatal]
  - Acute kidney injury [Fatal]
  - Sepsis [Fatal]

NARRATIVE: CASE EVENT DATE: 20180525
